FAERS Safety Report 9295495 (Version 3)
Quarter: 2013Q2

REPORT INFORMATION
  Report Type: Spontaneous
  Country: DE (occurrence: DE)
  Receive Date: 20130517
  Receipt Date: 20130625
  Transmission Date: 20140414
  Serious: Yes (Other)
  Sender: FDA-Public Use
  Company Number: DE-PFIZER INC-2013150307

PATIENT
  Age: 39 Year
  Sex: Male
  Weight: 64 kg

DRUGS (1)
  1. SERTRALINE HCL [Suspect]
     Indication: INSOMNIA
     Dosage: 20 MG, 1X1/2 DAILY

REACTIONS (4)
  - Coagulopathy [Unknown]
  - Impaired healing [Unknown]
  - Haemorrhage [Unknown]
  - Off label use [Unknown]
